FAERS Safety Report 11770016 (Version 2)
Quarter: 2015Q4

REPORT INFORMATION
  Report Type: Spontaneous
  Country: US (occurrence: US)
  Receive Date: 20151123
  Receipt Date: 20151123
  Transmission Date: 20160304
  Serious: No
  Sender: FDA-Public Use
  Company Number: US-PERRIGO-14US011012

PATIENT
  Age: 31 Year
  Sex: Female
  Weight: 50.79 kg

DRUGS (3)
  1. POLYETHYLENE GLYCOL 3350. [Suspect]
     Active Substance: POLYETHYLENE GLYCOL 3350
     Dosage: LITTLE LESS THAN 17G, SINGLE
     Route: 048
     Dates: start: 20141103, end: 20141103
  2. POLYETHYLENE GLYCOL 3350. [Suspect]
     Active Substance: POLYETHYLENE GLYCOL 3350
     Indication: CONSTIPATION
     Dosage: 17 G, QD
     Route: 048
     Dates: start: 2014, end: 20141102
  3. METOPROLOL [Concomitant]
     Active Substance: METOPROLOL
     Indication: PRODUCT USED FOR UNKNOWN INDICATION
     Dosage: UNK
     Route: 065
     Dates: start: 2011

REACTIONS (4)
  - Flatulence [Not Recovered/Not Resolved]
  - Underdose [Recovered/Resolved]
  - Incorrect drug administration duration [Recovered/Resolved]
  - Abdominal distension [Not Recovered/Not Resolved]

NARRATIVE: CASE EVENT DATE: 2014
